FAERS Safety Report 22185063 (Version 1)
Quarter: 2023Q2

REPORT INFORMATION
  Report Type: Spontaneous
  Country: GR (occurrence: None)
  Receive Date: 20230407
  Receipt Date: 20230407
  Transmission Date: 20230721
  Serious: Yes (Hospitalization)
  Sender: FDA-Public Use
  Company Number: GR-ROCHE-3325521

PATIENT
  Sex: Male
  Weight: 42 kg

DRUGS (2)
  1. EVRYSDI [Suspect]
     Active Substance: RISDIPLAM
     Indication: Product used for unknown indication
     Dosage: ON 13/NOV/2022, HE RECEIVED MOST RECENT DOSE OF RISDIPLAM
     Route: 048
     Dates: start: 20220301
  2. SERETIDE [Concomitant]
     Active Substance: FLUTICASONE PROPIONATE\SALMETEROL XINAFOATE
     Indication: Obstructive airways disorder
     Dosage: DOSE 25+50MCG
     Dates: start: 20200925

REACTIONS (1)
  - Scoliosis surgery [Recovered/Resolved]
